FAERS Safety Report 8539173-8 (Version None)
Quarter: 2012Q3

REPORT INFORMATION
  Report Type: 
  Country: None (occurrence: None)
  Receive Date: 20120726
  Receipt Date: 20120720
  Transmission Date: 20120928
  Serious: Yes (Other)
  Sender: FDA-Public Use
  Company Number: JP-PFIZER INC-2012180155

PATIENT
  Age: 76 Year
  Sex: Female

DRUGS (1)
  1. AMLODIPINE [Suspect]

REACTIONS (1)
  - ASPIRATION [None]
